FAERS Safety Report 23363612 (Version 1)
Quarter: 2024Q1

REPORT INFORMATION
  Report Type: Spontaneous
  Country: DE (occurrence: DE)
  Receive Date: 20240103
  Receipt Date: 20240103
  Transmission Date: 20240410
  Serious: Yes (Life-Threatening, Hospitalization)
  Sender: FDA-Public Use
  Company Number: DE-SANDOZ-SDZ2024DE000143

PATIENT
  Age: 70 Year
  Sex: Female
  Weight: 63 kg

DRUGS (6)
  1. BEVACIZUMAB [Suspect]
     Active Substance: BEVACIZUMAB
     Dosage: MOST RECENT DOSE OF 08/FEB/2023
     Route: 042
     Dates: start: 20221207
  2. BEVACIZUMAB [Suspect]
     Active Substance: BEVACIZUMAB
     Indication: Neoplasm
     Dosage: MOST RECENT DOSE OF 03/MAY/2023
     Route: 042
     Dates: start: 20230322
  3. CARBOPLATIN [Suspect]
     Active Substance: CARBOPLATIN
     Dosage: MOST RECENT DOSE OF 08/FEB/2023
     Route: 042
     Dates: start: 20221207
  4. CARBOPLATIN [Suspect]
     Active Substance: CARBOPLATIN
     Indication: Neoplasm
     Dosage: 377.000MG TIW
     Route: 042
     Dates: start: 20230322, end: 20230322
  5. PACLITAXEL [Suspect]
     Active Substance: PACLITAXEL
     Indication: Neoplasm
     Dosage: 144.380MG TIW
     Route: 042
     Dates: start: 20230322, end: 20230322
  6. PACLITAXEL [Suspect]
     Active Substance: PACLITAXEL
     Dosage: MOST RECENT DOSE OF 08/FEB/2023
     Route: 042
     Dates: start: 20221207

REACTIONS (3)
  - Ileus [Recovered/Resolved]
  - Peripheral sensory neuropathy [Recovered/Resolved]
  - Vertigo [Unknown]

NARRATIVE: CASE EVENT DATE: 20230208
